FAERS Safety Report 8043615-4 (Version None)
Quarter: 2012Q1

REPORT INFORMATION
  Report Type: 
  Country: None (occurrence: None)
  Receive Date: 20120112
  Receipt Date: 20120104
  Transmission Date: 20120608
  Serious: Yes (Hospitalization, Other)
  Sender: FDA-Public Use
  Company Number: IN-BAXTER-2011BH039490

PATIENT
  Age: 73 Year
  Sex: Male

DRUGS (1)
  1. SODIUM CHLORIDE 0.9% IN PLASTIC CONTAINER [Suspect]
     Indication: PARALYSIS
     Route: 065
     Dates: start: 20111128, end: 20111204

REACTIONS (3)
  - UNEVALUABLE EVENT [None]
  - CHILLS [None]
  - PYREXIA [None]
